FAERS Safety Report 16862592 (Version 1)
Quarter: 2019Q3

REPORT INFORMATION
  Report Type: Spontaneous
  Country: HK (occurrence: HK)
  Receive Date: 20190927
  Receipt Date: 20190927
  Transmission Date: 20191005
  Serious: Yes (Death)
  Sender: FDA-Public Use
  Company Number: HK-PFIZER INC-2019396084

PATIENT
  Sex: Female

DRUGS (11)
  1. DABIGATRAN ETEXILATE MESILATE [Concomitant]
     Active Substance: DABIGATRAN ETEXILATE MESYLATE
     Dosage: UNKOWN
     Route: 065
  2. HALOPERIDOL. [Concomitant]
     Active Substance: HALOPERIDOL
     Dosage: UNKNOWN
     Route: 065
  3. CRIZOTINIB [Suspect]
     Active Substance: CRIZOTINIB
     Indication: LUNG ADENOCARCINOMA
  4. SENNA LAXATIVE [Concomitant]
     Active Substance: SENNOSIDES
     Dosage: UNKNOWN
     Route: 065
  5. METOCLOPRAMIDE HCL [Concomitant]
     Active Substance: METOCLOPRAMIDE HYDROCHLORIDE
     Dosage: UNKNOWN
     Route: 065
  6. PARACETAMOL [Concomitant]
     Active Substance: ACETAMINOPHEN
     Dosage: UNKNOWN
     Route: 065
  7. LEVOFLOXACIN. [Concomitant]
     Active Substance: LEVOFLOXACIN
     Dosage: UNKNOWN
     Route: 065
  8. TRANEXAMIC ACID MYX [Concomitant]
     Dosage: UNKNOWN
     Route: 065
  9. ACETYLCYSTEINE M/G [Concomitant]
     Dosage: UNKNOWN
     Route: 065
  10. ACTIFED COMPOUND [Concomitant]
     Dosage: UNKOWN
     Route: 065
  11. ENTECAVIR. [Concomitant]
     Active Substance: ENTECAVIR
     Dosage: UNKNOWN
     Route: 065

REACTIONS (1)
  - Death [Fatal]
